FAERS Safety Report 15534813 (Version 1)
Quarter: 2018Q4

REPORT INFORMATION
  Report Type: Spontaneous
  Country: US (occurrence: US)
  Receive Date: 20181022
  Receipt Date: 20181022
  Transmission Date: 20190205
  Serious: No
  Sender: FDA-Public Use
  Company Number: US-TEVA-2018-US-963903

PATIENT
  Age: 63 Year
  Sex: Female

DRUGS (1)
  1. FENTANYL ACTAVIS [Suspect]
     Active Substance: FENTANYL
     Route: 065

REACTIONS (2)
  - Ulcer [Unknown]
  - Skin burning sensation [Unknown]
